FAERS Safety Report 19861533 (Version 2)
Quarter: 2021Q4

REPORT INFORMATION
  Report Type: Spontaneous
  Country: CZ (occurrence: CZ)
  Receive Date: 20210920
  Receipt Date: 20211006
  Transmission Date: 20220303
  Serious: Yes (Disabling, Other)
  Sender: FDA-Public Use
  Company Number: CZ-SA-SAC20210915000127

PATIENT

DRUGS (6)
  1. LIBTAYO [Suspect]
     Active Substance: CEMIPLIMAB-RWLC
     Indication: Skin squamous cell carcinoma metastatic
     Dosage: 350 MG, Q3W
     Route: 042
     Dates: start: 20210428
  2. LIBTAYO [Suspect]
     Active Substance: CEMIPLIMAB-RWLC
     Dosage: 350 MG, Q3W
     Route: 042
     Dates: start: 20210519
  3. LIBTAYO [Suspect]
     Active Substance: CEMIPLIMAB-RWLC
     Dosage: 350 MG
     Route: 042
     Dates: start: 20210611
  4. LIBTAYO [Suspect]
     Active Substance: CEMIPLIMAB-RWLC
     Dosage: 350 MG, Q3W
     Route: 042
     Dates: start: 20210428, end: 20210611
  5. XEFORAPID [Concomitant]
     Indication: Squamous cell carcinoma
     Dosage: 350MG
  6. DIOSMIN\HESPERIDIN [Concomitant]
     Active Substance: DIOSMIN\HESPERIDIN
     Indication: Peripheral venous disease
     Dosage: 2-0-0
     Route: 048

REACTIONS (9)
  - Cancer pain [Unknown]
  - Exercise tolerance decreased [Recovered/Resolved]
  - Tremor [Recovered/Resolved]
  - Vertigo [Not Recovered/Not Resolved]
  - Asthenia [Recovered/Resolved]
  - Fatigue [Recovered/Resolved]
  - General physical health deterioration [Recovered/Resolved]
  - Dizziness [Unknown]
  - Palpitations [Unknown]

NARRATIVE: CASE EVENT DATE: 20210501
